FAERS Safety Report 9058106 (Version 1)
Quarter: 2013Q1

REPORT INFORMATION
  Report Type: Spontaneous
  Country: US (occurrence: None)
  Receive Date: 20130204
  Receipt Date: 20130204
  Transmission Date: 20140127
  Serious: No
  Sender: FDA-Public Use
  Company Number: None

PATIENT
  Age: 57 Year
  Sex: Female
  Weight: 87.09 kg

DRUGS (3)
  1. INCIVEK [Suspect]
     Indication: HEPATITIS C
     Dosage: 6 CAPS DAILY
     Dates: start: 20121114, end: 20130117
  2. RIBASPHERE (RIBAVIRIN) [Concomitant]
  3. PEGASYS [Concomitant]

REACTIONS (2)
  - Rash pruritic [None]
  - Rash generalised [None]
